FAERS Safety Report 6447155-5 (Version None)
Quarter: 2009Q4

REPORT INFORMATION
  Report Type: 
  Country: None (occurrence: None)
  Receive Date: 20091119
  Receipt Date: 20091111
  Transmission Date: 20100525
  Serious: Yes (Other)
  Sender: FDA-Public Use
  Company Number: US-PFIZER INC-2009296700

PATIENT
  Sex: Male

DRUGS (3)
  1. MICRONASE [Suspect]
  2. METFORMIN HCL [Suspect]
  3. INHALED HUMAN INSULIN [Suspect]

REACTIONS (1)
  - DIABETES MELLITUS INADEQUATE CONTROL [None]
